FAERS Safety Report 15335052 (Version 2)
Quarter: 2018Q3

REPORT INFORMATION
  Report Type: Spontaneous
  Country: US (occurrence: US)
  Receive Date: 20180830
  Receipt Date: 20180914
  Transmission Date: 20181010
  Serious: Yes (Hospitalization)
  Sender: FDA-Public Use
  Company Number: US-TEVA-2018-US-948499

PATIENT
  Age: 36 Year
  Sex: Female

DRUGS (5)
  1. TRANYLCYPROMINE [Interacting]
     Active Substance: TRANYLCYPROMINE
     Indication: DEPRESSION
     Route: 048
  2. TRANYLCYPROMINE [Interacting]
     Active Substance: TRANYLCYPROMINE
     Indication: DEPRESSION
     Route: 048
  3. ARMODAFINIL. [Suspect]
     Active Substance: ARMODAFINIL
     Indication: SOMNOLENCE
     Route: 048
  4. ALPRAZOLAM. [Concomitant]
     Active Substance: ALPRAZOLAM
     Dosage: OMITTED ON THE MORNING OF PRESENTATION
     Route: 065
  5. BREXPIPRAZOLE [Interacting]
     Active Substance: BREXPIPRAZOLE
     Route: 065

REACTIONS (3)
  - Headache [Recovered/Resolved]
  - Drug interaction [Recovered/Resolved]
  - Hypertensive crisis [Recovered/Resolved]
